FAERS Safety Report 8695119 (Version 2)
Quarter: 2013Q4

REPORT INFORMATION
  Report Type: Spontaneous
  Country: US (occurrence: US)
  Receive Date: 20120731
  Receipt Date: 20131031
  Transmission Date: 20140711
  Serious: No
  Sender: FDA-Public Use
  Company Number: US-009507513-2012SP034907

PATIENT
  Age: 16 Year
  Sex: Female

DRUGS (2)
  1. NEXPLANON [Suspect]
     Indication: CONTRACEPTION
     Dates: start: 20120618, end: 20120618
  2. NEXPLANON [Suspect]
     Dates: start: 20120618

REACTIONS (2)
  - Medical device complication [Recovered/Resolved]
  - No adverse event [Unknown]
